FAERS Safety Report 10472514 (Version 1)
Quarter: 2014Q3

REPORT INFORMATION
  Report Type: Spontaneous
  Country: US (occurrence: None)
  Receive Date: 20140923
  Receipt Date: 20140923
  Transmission Date: 20150326
  Serious: Yes (Disabling)
  Sender: FDA-Public Use
  Company Number: None

PATIENT
  Age: 72 Year
  Sex: Male
  Weight: 89.81 kg

DRUGS (1)
  1. NEURONTIN [Suspect]
     Active Substance: GABAPENTIN
     Indication: SCIATICA
     Route: 048
     Dates: start: 20140601, end: 20140904

REACTIONS (4)
  - Decreased appetite [None]
  - Weight decreased [None]
  - Dysgeusia [None]
  - Asthenia [None]

NARRATIVE: CASE EVENT DATE: 20140901
